FAERS Safety Report 5734162-0 (Version None)
Quarter: 2008Q2

REPORT INFORMATION
  Report Type: 
  Country: None (occurrence: None)
  Receive Date: 20080509
  Receipt Date: 20070331
  Transmission Date: 20081010
  Serious: Yes (Other)
  Sender: FDA-Public Use
  Company Number: US-GENENTECH-260760

PATIENT
  Sex: Male

DRUGS (3)
  1. BEVACIZUMAB [Suspect]
     Indication: MALIGNANT MELANOMA
     Dosage: 10 MG/KG, DAYS 1+15
     Route: 042
     Dates: start: 20060712
  2. PACLITAXEL [Suspect]
     Indication: MALIGNANT MELANOMA
     Dosage: 80 MG/KG, DAYS1,8,15
     Route: 042
     Dates: start: 20060712
  3. CARBOPLATIN [Suspect]
     Indication: MALIGNANT MELANOMA
     Dosage: UNK, Q28D
     Route: 042
     Dates: start: 20060712

REACTIONS (2)
  - NUCLEAR MAGNETIC RESONANCE IMAGING BRAIN ABNORMAL [None]
  - SPEECH DISORDER [None]
